FAERS Safety Report 7602893-3 (Version None)
Quarter: 2011Q3

REPORT INFORMATION
  Report Type: 
  Country: None (occurrence: None)
  Receive Date: 20110712
  Receipt Date: 20110706
  Transmission Date: 20111222
  Serious: Yes (Death, Other)
  Sender: FDA-Public Use
  Company Number: JP-CELGENEUS-087-21880-11070238

PATIENT
  Age: 75 Year
  Sex: Male

DRUGS (16)
  1. CELECOXIB [Concomitant]
     Indication: PROPHYLAXIS
     Dosage: 100-200MG
     Route: 048
     Dates: start: 20110304, end: 20110326
  2. REVLIMID [Suspect]
     Dosage: 5 MILLIGRAM
     Route: 048
     Dates: start: 20110321, end: 20110325
  3. RABEPRAZOLE SODIUM [Concomitant]
     Indication: PROPHYLAXIS
     Dosage: 10 MILLIGRAM
     Route: 048
     Dates: start: 20110304, end: 20110326
  4. ALLOPURINOL [Concomitant]
     Indication: PROPHYLAXIS
     Dosage: 100-300MG
     Route: 048
     Dates: start: 20110304, end: 20110326
  5. CYCLOPHOSPHAMIDE [Concomitant]
     Dosage: 100 MILLIGRAM
     Route: 048
     Dates: start: 20110323, end: 20110326
  6. REVLIMID [Suspect]
     Indication: MULTIPLE MYELOMA
     Dosage: 10 MILLIGRAM
     Route: 048
     Dates: start: 20110304, end: 20110310
  7. METHYCOBAL [Concomitant]
     Indication: PROPHYLAXIS
     Dosage: 500-1500MG
     Route: 048
     Dates: start: 20110304, end: 20110326
  8. REVLIMID [Suspect]
     Dosage: 5 MILLIGRAM
     Route: 048
     Dates: start: 20110314, end: 20110314
  9. PREDNISOLONE [Concomitant]
     Indication: MULTIPLE MYELOMA
     Dosage: 5-15MG
     Route: 048
     Dates: start: 20110307, end: 20110326
  10. MAGNESIUM SULFATE [Concomitant]
     Indication: PROPHYLAXIS
     Dosage: 250-700MG
     Route: 048
     Dates: start: 20110304, end: 20110326
  11. WARFARIN SODIUM [Concomitant]
     Indication: PROPHYLAXIS
     Dosage: 0-5MG
     Route: 048
     Dates: start: 20110304, end: 20110326
  12. URSO 250 [Concomitant]
     Indication: PROPHYLAXIS
     Dosage: 100-300MG
     Route: 048
     Dates: start: 20110304, end: 20110326
  13. PURSENNID [Concomitant]
     Indication: PROPHYLAXIS
     Dosage: 24 MILLIGRAM
     Route: 048
     Dates: start: 20110305, end: 20110326
  14. MUCOSTA [Concomitant]
     Indication: PROPHYLAXIS
     Dosage: 100-300MG
     Route: 048
     Dates: start: 20110304, end: 20110326
  15. DEXAMETHASONE [Suspect]
     Indication: MULTIPLE MYELOMA
     Dosage: 32 MILLIGRAM
     Route: 048
     Dates: start: 20110304, end: 20110306
  16. FLUCONAZOLE [Concomitant]
     Indication: PROPHYLAXIS
     Dosage: 100-200MG
     Route: 048
     Dates: start: 20110304, end: 20110326

REACTIONS (5)
  - RENAL FAILURE ACUTE [None]
  - PNEUMONIA [None]
  - NEUTROPENIA [None]
  - ATRIAL FIBRILLATION [None]
  - CONSTIPATION [None]
